FAERS Safety Report 6070029-9 (Version None)
Quarter: 2009Q1

REPORT INFORMATION
  Report Type: 
  Country: None (occurrence: None)
  Receive Date: 20090209
  Receipt Date: 20090128
  Transmission Date: 20090719
  Serious: Yes (Hospitalization)
  Sender: FDA-Public Use
  Company Number: PHHY2009JP03299

PATIENT
  Age: 13 Year
  Sex: Male

DRUGS (3)
  1. VOLTAREN [Suspect]
     Indication: ANTIPYRESIS
     Dosage: UNK
     Route: 054
  2. CALONAL [Suspect]
     Dosage: 200 MG
     Route: 048
  3. KLARICID [Suspect]
     Dosage: 400 MG
     Route: 048

REACTIONS (1)
  - SYSTEMIC INFLAMMATORY RESPONSE SYNDROME [None]
